FAERS Safety Report 14444747 (Version 2)
Quarter: 2019Q1

REPORT INFORMATION
  Report Type: Spontaneous
  Country: US (occurrence: US)
  Receive Date: 20180126
  Receipt Date: 20190204
  Transmission Date: 20190417
  Serious: No
  Sender: FDA-Public Use
  Company Number: US-ABBVIE-17K-163-2059637-00

PATIENT
  Sex: Female

DRUGS (1)
  1. HUMIRA [Suspect]
     Active Substance: ADALIMUMAB
     Indication: RHEUMATOID ARTHRITIS
     Route: 058

REACTIONS (13)
  - Endodontic procedure [Unknown]
  - Toothache [Unknown]
  - Influenza [Unknown]
  - Blood cholesterol abnormal [Unknown]
  - Bronchitis [Unknown]
  - Blood glucose abnormal [Recovering/Resolving]
  - Procedural complication [Unknown]
  - Weight increased [Unknown]
  - Device breakage [Unknown]
  - Loose tooth [Unknown]
  - Rheumatoid arthritis [Unknown]
  - Fear [Unknown]
  - Feeling abnormal [Unknown]

NARRATIVE: CASE EVENT DATE: 201708
